FAERS Safety Report 7520270-0 (Version None)
Quarter: 2011Q2

REPORT INFORMATION
  Report Type: 
  Country: None (occurrence: None)
  Receive Date: 20110602
  Receipt Date: 20110523
  Transmission Date: 20111010
  Serious: Yes (Other)
  Sender: FDA-Public Use
  Company Number: IT-BAYER-2011-047102

PATIENT
  Age: 62 Year
  Sex: Female

DRUGS (20)
  1. BROMIDEM [Concomitant]
  2. VITAMINS [Concomitant]
  3. ESOMEPRAZOLE MAGNESIUM [Concomitant]
  4. ACARBOSE [Suspect]
     Indication: DIABETES MELLITUS
  5. SALMETEROL [Concomitant]
     Dosage: UNK
  6. IPRATROPIUM BROMIDE [Concomitant]
  7. FLUTICASONE PROPIONATE [Concomitant]
  8. SPIRONOLACTONE [Concomitant]
  9. ALBUTEROL [Concomitant]
  10. LISINOPRIL [Concomitant]
  11. EXENATIDE [Concomitant]
  12. VALSARTAN [Concomitant]
  13. POTASSIUM CHLORIDE [Concomitant]
  14. CETIRIZINE HCL [Concomitant]
  15. CALCIUM GLUCONATE [Concomitant]
  16. CALCIUM GLUCEPTATE [Concomitant]
  17. GLIMEPIRIDE-METFORMIN-PIOGLITAZONE [Suspect]
     Indication: DIABETES MELLITUS
  18. INSULIN GLARGINE [Concomitant]
  19. DULOXETINE HYDROCHLORIDE [Concomitant]
  20. GLIMEPIRIDE [Concomitant]

REACTIONS (1)
  - BLADDER CANCER [None]
